FAERS Safety Report 9666558 (Version 2)
Quarter: 2014Q1

REPORT INFORMATION
  Report Type: Spontaneous
  Country: FI (occurrence: FI)
  Receive Date: 20131104
  Receipt Date: 20140220
  Transmission Date: 20141002
  Serious: Yes (Hospitalization, Other)
  Sender: FDA-Public Use
  Company Number: PHHY2013FI124521

PATIENT
  Age: 61 Year
  Sex: Female

DRUGS (18)
  1. ACLASTA [Suspect]
     Indication: OSTEOPOROSIS
     Dosage: UNK
     Route: 042
     Dates: start: 201012
  2. ACLASTA [Suspect]
     Dosage: UNK
     Route: 042
     Dates: start: 201112
  3. ACLASTA [Suspect]
     Dosage: UNK
     Route: 042
     Dates: start: 201212
  4. OXIKLORIN [Concomitant]
     Dosage: UNK
  5. DIOVAN [Concomitant]
     Dosage: 1 DF, QD
  6. DILMIN [Concomitant]
     Dosage: 2 DF, QD
  7. PRAVASTATIN [Concomitant]
     Dosage: 1 DF, QD
  8. ZUMENON [Concomitant]
     Dosage: 1 DF, QD
  9. TEROLUT [Concomitant]
     Dosage: 1 TABLET DAILY IN THE  DAYS 14-28 IN THE MENSTRUAL CYCLE
  10. VAGIFEM [Concomitant]
     Dosage: 1 DF, UNK
  11. RETAFYLLIN [Concomitant]
     Dosage: 2 DF, QD
  12. ONBREZ [Concomitant]
     Dosage: 1 DF, QD
  13. ALVESCO [Concomitant]
     Dosage: 2 DF, QD
  14. NEXIUM 1-2-3 [Concomitant]
     Dosage: 2 DF, QD
  15. MULTIVITA PLUS [Concomitant]
     Dosage: 1 DF, QD
  16. CALCICHEW D3 FORTE [Concomitant]
     Dosage: 2 DF, QD (CALCIUM CARBONATE 500MG, VITAMIN-D 10UG)
  17. D MAX [Concomitant]
     Dosage: 1 DF, QD
  18. DINIT [Concomitant]
     Dosage: 1 DF, AS NEEDED

REACTIONS (11)
  - Hip fracture [Recovered/Resolved with Sequelae]
  - Fall [Unknown]
  - Intracranial aneurysm [Unknown]
  - Eosinophilic fasciitis [Unknown]
  - Intervertebral disc degeneration [Unknown]
  - Blood albumin decreased [Unknown]
  - Weight decreased [Unknown]
  - Weight increased [Unknown]
  - Pain [Not Recovered/Not Resolved]
  - Insomnia [Unknown]
  - Bone density decreased [Unknown]
